FAERS Safety Report 5135628-7 (Version None)
Quarter: 2006Q4

REPORT INFORMATION
  Report Type: 
  Country: None (occurrence: None)
  Receive Date: 20061026
  Receipt Date: 20050912
  Transmission Date: 20070319
  Serious: Yes (Death, Hospitalization)
  Sender: FDA-Public Use
  Company Number: CH-SANOFI-SYNTHELABO-F01200501859

PATIENT
  Sex: Female

DRUGS (7)
  1. HALDOL [Concomitant]
     Route: 048
     Dates: start: 20050907
  2. LORAZEPAM [Concomitant]
     Dates: end: 20050902
  3. CAPECITABINE [Suspect]
     Dosage: 2 X 1000 MG/M2 PER DAY OF DAYS 1-15, Q3W
     Route: 048
     Dates: start: 20050829, end: 20050907
  4. ASPIRIN [Concomitant]
     Route: 048
  5. OXALIPLATIN [Suspect]
     Indication: COLORECTAL CANCER METASTATIC
     Dosage: 220 MG
     Route: 042
     Dates: start: 20050829, end: 20050829
  6. TRAMADOL HCL [Concomitant]
     Route: 048
     Dates: start: 20050810, end: 20050902
  7. MORPHINE [Concomitant]
     Dosage: 2%
     Route: 048
     Dates: start: 20050907

REACTIONS (3)
  - COLITIS ISCHAEMIC [None]
  - DIARRHOEA HAEMORRHAGIC [None]
  - NAUSEA [None]
